FAERS Safety Report 17501022 (Version 1)
Quarter: 2020Q1

REPORT INFORMATION
  Report Type: Spontaneous
  Country: RU (occurrence: RU)
  Receive Date: 20200305
  Receipt Date: 20200305
  Transmission Date: 20200409
  Serious: Yes (Hospitalization)
  Sender: FDA-Public Use
  Company Number: RU-TEVA-2020-RU-1193531

PATIENT
  Age: 10 Year
  Sex: Male

DRUGS (2)
  1. TOPSAVER [Suspect]
     Active Substance: TOPIRAMATE
     Indication: EPILEPSY
     Dosage: DAILY DOSE- 125 / 125 MG; SINGLE DOSE - 75 / 75 MG
     Route: 048
     Dates: start: 20170416, end: 20170430
  2. TOREAL [Suspect]
     Active Substance: TOPIRAMATE
     Indication: EPILEPSY
     Dosage: DAILY DOSE- 125 / 125 MG; SINGLE DOSE - 75 / 75 MG
     Route: 048
     Dates: start: 20170401, end: 20170415

REACTIONS (3)
  - Nausea [Recovering/Resolving]
  - Lethargy [Recovering/Resolving]
  - Dizziness [Recovering/Resolving]

NARRATIVE: CASE EVENT DATE: 201704
